FAERS Safety Report 9253791 (Version 2)
Quarter: 2013Q3

REPORT INFORMATION
  Report Type: Spontaneous
  Country: US (occurrence: US)
  Receive Date: 20130425
  Receipt Date: 20130816
  Transmission Date: 20140515
  Serious: No
  Sender: FDA-Public Use
  Company Number: US-PFIZER INC-2013122551

PATIENT
  Age: 47 Year
  Sex: Female
  Weight: 73.02 kg

DRUGS (4)
  1. AROMASIN [Suspect]
     Indication: BREAST CANCER
     Dosage: 25 MG, 1X/DAY
     Dates: start: 20130401, end: 201305
  2. AFINITOR [Suspect]
     Indication: BREAST CANCER
     Dosage: 25 MG, 1X/DAY
     Dates: start: 201307
  3. EXEMESTANE [Suspect]
     Indication: BREAST CANCER
     Dosage: 25 MG, 1X/DAY
     Dates: start: 201307
  4. DOXYCYCLINE [Suspect]
     Indication: LOCALISED INFECTION
     Dosage: UNK
     Dates: start: 201308, end: 201308

REACTIONS (21)
  - Headache [Unknown]
  - Dry skin [Unknown]
  - Skin exfoliation [Unknown]
  - Diarrhoea [Unknown]
  - Appetite disorder [Unknown]
  - Dysgeusia [Unknown]
  - Odynophagia [Unknown]
  - Oral pain [Unknown]
  - Oral herpes [Unknown]
  - Paraesthesia [Unknown]
  - Hypoaesthesia [Unknown]
  - Alopecia [Unknown]
  - Feeling hot [Unknown]
  - Oedema peripheral [Unknown]
  - Dizziness [Unknown]
  - Nasopharyngitis [Unknown]
  - Localised infection [Unknown]
  - Malaise [Unknown]
  - Abdominal discomfort [Unknown]
  - Feeling abnormal [Unknown]
  - Disorientation [Unknown]
